FAERS Safety Report 21506618 (Version 2)
Quarter: 2023Q1

REPORT INFORMATION
  Report Type: Spontaneous
  Country: US (occurrence: US)
  Receive Date: 20221026
  Receipt Date: 20230112
  Transmission Date: 20230418
  Serious: No
  Sender: FDA-Public Use
  Company Number: US-SANOFI-01331732

PATIENT
  Age: 50 Year
  Sex: Female
  Weight: 103.4 kg

DRUGS (1)
  1. DUPIXENT [Suspect]
     Active Substance: DUPILUMAB
     Dosage: 300 MG
     Dates: start: 20220629, end: 20220903

REACTIONS (2)
  - Visual impairment [Unknown]
  - Eye pain [Unknown]
